FAERS Safety Report 4360763-0 (Version None)
Quarter: 2004Q2

REPORT INFORMATION
  Report Type: 
  Country: None (occurrence: None)
  Receive Date: 20040519
  Receipt Date: 20040511
  Transmission Date: 20050107
  Serious: Yes (Hospitalization)
  Sender: FDA-Public Use
  Company Number: 2004032753

PATIENT
  Age: 43 Year
  Sex: Male
  Weight: 54.4316 kg

DRUGS (1)
  1. LISTERINE (EUCALYPTOL, MENTHOL, METHYL SALICYLATE, THYMOL) [Suspect]
     Indication: INTENTIONAL OVERDOSE
     Dosage: QD, ORAL
     Route: 048

REACTIONS (1)
  - INTENTIONAL MISUSE [None]
